FAERS Safety Report 8992151 (Version 1)
Quarter: 2012Q4

REPORT INFORMATION
  Report Type: Report from Study
  Country: CA (occurrence: CA)
  Receive Date: 20121231
  Receipt Date: 20121231
  Transmission Date: 20130627
  Serious: Yes (Other)
  Sender: FDA-Public Use
  Company Number: CA-ROCHE-1171747

PATIENT
  Age: 80 Year
  Sex: Male
  Weight: 68.07 kg

DRUGS (7)
  1. OMALIZUMAB [Suspect]
     Indication: ASTHMA
     Dosage: 150 mg, Q2W
     Route: 058
     Dates: start: 20061019
  2. OMALIZUMAB [Suspect]
     Route: 058
  3. OMALIZUMAB [Suspect]
     Route: 058
  4. OMALIZUMAB [Suspect]
     Route: 058
  5. OMALIZUMAB [Suspect]
     Route: 058
  6. OMALIZUMAB [Suspect]
     Route: 058
  7. TAMSULOSIN [Concomitant]
     Indication: PRODUCT USED FOR UNKNOWN INDICATION

REACTIONS (24)
  - Dizziness [Recovered/Resolved]
  - Balance disorder [Recovered/Resolved]
  - Seasonal allergy [Not Recovered/Not Resolved]
  - Vertigo [Recovered/Resolved]
  - Disturbance in attention [Unknown]
  - Urogenital disorder [Unknown]
  - Nodal arrhythmia [Unknown]
  - Blood immunoglobulin E increased [Unknown]
  - Visual impairment [Unknown]
  - Asthenopia [Unknown]
  - Asthenia [Unknown]
  - Feeling drunk [Unknown]
  - Conjunctivitis [Unknown]
  - Bradyphrenia [Unknown]
  - Ataxia [Unknown]
  - Dizziness postural [Unknown]
  - Productive cough [Unknown]
  - Dysphonia [Unknown]
  - Somnolence [Unknown]
  - Nasopharyngitis [Unknown]
  - Cough [Unknown]
  - Headache [Unknown]
  - Chest discomfort [Unknown]
  - Chest pain [Unknown]
